FAERS Safety Report 5050095-X (Version None)
Quarter: 2006Q3

REPORT INFORMATION
  Report Type: 
  Country: None (occurrence: None)
  Receive Date: 20060713
  Receipt Date: 20060705
  Transmission Date: 20061208
  Serious: Yes (Hospitalization)
  Sender: FDA-Public Use
  Company Number: ES-AVENTIS-200616953GDDC

PATIENT
  Age: 41 Year
  Sex: Male

DRUGS (1)
  1. DDAVP [Suspect]
     Route: 042

REACTIONS (2)
  - COMA [None]
  - HYPONATRAEMIA [None]
